FAERS Safety Report 6792103-1 (Version None)
Quarter: 2010Q2

REPORT INFORMATION
  Report Type: 
  Country: None (occurrence: None)
  Receive Date: 20100624
  Receipt Date: 20080723
  Transmission Date: 20101027
  Serious: No
  Sender: FDA-Public Use
  Company Number: US-PFIZER INC-2008061898

PATIENT
  Sex: Female
  Weight: 81.818 kg

DRUGS (3)
  1. XALATAN [Suspect]
     Dates: start: 20080625, end: 20080701
  2. AMLODIPINE [Concomitant]
  3. MULTI-VITAMINS [Concomitant]

REACTIONS (1)
  - RASH [None]
